FAERS Safety Report 10736954 (Version 2)
Quarter: 2015Q2

REPORT INFORMATION
  Report Type: Spontaneous
  Country: US (occurrence: US)
  Receive Date: 20150126
  Receipt Date: 20150423
  Transmission Date: 20150821
  Serious: Yes (Other)
  Sender: FDA-Public Use
  Company Number: US-CELGENEUS-USA-2014105200

PATIENT
  Age: 20 Year
  Sex: Female

DRUGS (13)
  1. REVLIMID [Suspect]
     Active Substance: LENALIDOMIDE
     Indication: DERMATOMYOSITIS
     Route: 048
     Dates: start: 201111
  2. REVLIMID [Suspect]
     Active Substance: LENALIDOMIDE
     Dosage: 2.5 MG - 5 MG
     Route: 048
     Dates: start: 201402
  3. COLCHICINE. [Concomitant]
     Active Substance: COLCHICINE
     Indication: CALCINOSIS
     Dosage: 45 MILLIGRAM
     Route: 048
     Dates: start: 201503
  4. REVLIMID [Suspect]
     Active Substance: LENALIDOMIDE
     Route: 048
     Dates: start: 201412, end: 201503
  5. METHOTREXATE [Concomitant]
     Active Substance: METHOTREXATE
     Indication: DERMATOMYOSITIS
     Route: 058
     Dates: start: 201110
  6. IVIG [Concomitant]
     Active Substance: HUMAN IMMUNOGLOBULIN G
     Indication: DERMATOMYOSITIS
     Route: 065
     Dates: start: 201110
  7. REVLIMID [Suspect]
     Active Substance: LENALIDOMIDE
     Dosage: 300 MILLIGRAM
     Route: 048
     Dates: start: 201409
  8. PLAQUENIL [Concomitant]
     Active Substance: HYDROXYCHLOROQUINE SULFATE
     Indication: DERMATOMYOSITIS
     Route: 065
     Dates: start: 201110
  9. REVLIMID [Suspect]
     Active Substance: LENALIDOMIDE
     Route: 048
     Dates: start: 201410
  10. IVIG [Concomitant]
     Active Substance: HUMAN IMMUNOGLOBULIN G
     Route: 065
     Dates: start: 201307
  11. PREDNISONE. [Concomitant]
     Active Substance: PREDNISONE
     Indication: DERMATOMYOSITIS
     Route: 048
     Dates: start: 201111, end: 201503
  12. PAMIDRONATE [Concomitant]
     Active Substance: PAMIDRONATE DISODIUM
     Indication: CALCINOSIS
     Dosage: 2.5 MILLIGRAM
     Route: 041
     Dates: start: 201501
  13. REVLIMID [Suspect]
     Active Substance: LENALIDOMIDE
     Indication: CALCINOSIS
     Dosage: 10 MG - 5 MG
     Route: 048
     Dates: start: 201201

REACTIONS (2)
  - White blood cell count decreased [Recovered/Resolved]
  - Full blood count decreased [Recovered/Resolved]

NARRATIVE: CASE EVENT DATE: 2014
